FAERS Safety Report 21328967 (Version 2)
Quarter: 2022Q4

REPORT INFORMATION
  Report Type: Report from Study
  Country: JP (occurrence: JP)
  Receive Date: 20220913
  Receipt Date: 20221005
  Transmission Date: 20230113
  Serious: Yes (Hospitalization)
  Sender: FDA-Public Use
  Company Number: JP-ONO-2022JP023238

PATIENT
  Age: 51 Year
  Sex: Female
  Weight: 52.5 kg

DRUGS (24)
  1. NIVOLUMAB [Suspect]
     Active Substance: NIVOLUMAB
     Indication: Pancreatic carcinoma
     Route: 041
     Dates: start: 20220818
  2. IRINOTECAN [Suspect]
     Active Substance: IRINOTECAN
     Indication: Pancreatic carcinoma
     Dosage: 216 MG, Q2W
     Route: 065
     Dates: start: 20220818
  3. IRINOTECAN [Suspect]
     Active Substance: IRINOTECAN
  4. IRINOTECAN [Suspect]
     Active Substance: IRINOTECAN
  5. MAGROLIMAB [Suspect]
     Active Substance: MAGROLIMAB
     Indication: Pancreatic carcinoma
     Dosage: 51 MG
     Route: 041
     Dates: start: 20220818
  6. LEVOLEUCOVORIN DISODIUM [Suspect]
     Active Substance: LEVOLEUCOVORIN DISODIUM
     Indication: Pancreatic carcinoma
     Route: 065
     Dates: start: 20220818
  7. FLUOROURACIL [Suspect]
     Active Substance: FLUOROURACIL
     Indication: Pancreatic carcinoma
     Route: 065
     Dates: start: 20220818
  8. OXALIPLATIN [Suspect]
     Active Substance: OXALIPLATIN
     Indication: Pancreatic carcinoma
     Route: 065
     Dates: start: 20220818
  9. LOPERAMIDE HYDROCHLORIDE [Concomitant]
     Active Substance: LOPERAMIDE HYDROCHLORIDE
     Indication: Diarrhoea
     Dosage: 1 MG, PRN
     Route: 048
     Dates: start: 20220823
  10. CILNIDIPINE [Concomitant]
     Active Substance: CILNIDIPINE
     Indication: Hypertension
     Dosage: 10 MG, EVERYDAY
     Route: 048
     Dates: start: 20220802
  11. CILNIDIPINE [Concomitant]
     Active Substance: CILNIDIPINE
     Dosage: 10 MG, EVERYDAY
     Route: 048
  12. MIROGABALIN BESYLATE [Concomitant]
     Active Substance: MIROGABALIN BESYLATE
     Indication: Spinal ligament ossification
     Dosage: 5 MG, Q12H
     Route: 048
     Dates: start: 201804
  13. INSULIN GLARGINE [Concomitant]
     Active Substance: INSULIN GLARGINE
     Indication: Diabetes mellitus
     Dosage: 15 IU, EVERYDAY
     Route: 058
     Dates: start: 202206
  14. INSULIN GLARGINE [Concomitant]
     Active Substance: INSULIN GLARGINE
  15. INSULIN GLARGINE [Concomitant]
     Active Substance: INSULIN GLARGINE
  16. HUMALOG [Concomitant]
     Active Substance: INSULIN LISPRO
     Indication: Diabetes mellitus
     Dosage: 5 IU-6 IU-4 IU, Q8H
     Route: 058
     Dates: start: 202206
  17. FENTANYL [Concomitant]
     Active Substance: FENTANYL
     Indication: Pancreatic carcinoma
     Dosage: 0.5 MG, EVERYDAY
     Route: 062
     Dates: start: 20220802
  18. HYDROMORPHONE HYDROCHLORIDE [Concomitant]
     Active Substance: HYDROMORPHONE HYDROCHLORIDE
     Indication: Pancreatic carcinoma
     Dosage: 1 MG, PRN
     Route: 048
     Dates: start: 20220802
  19. DOMPERIDONE [Concomitant]
     Active Substance: DOMPERIDONE
     Indication: Nausea
     Dosage: 10 MG, PRN
     Route: 048
     Dates: start: 20220807
  20. BELSOMRA [Concomitant]
     Active Substance: SUVOREXANT
     Indication: Insomnia
     Dosage: 15 MG, EVERYDAY
     Route: 048
     Dates: start: 20220831
  21. PERINDOPRIL ERBUMINE [Concomitant]
     Active Substance: PERINDOPRIL ERBUMINE
     Indication: Hypertension
     Dosage: 2 MG, EVERYDAY
     Route: 048
     Dates: start: 20220802
  22. ETODOLAC [Concomitant]
     Active Substance: ETODOLAC
     Indication: Pancreatic carcinoma
     Dosage: 200 MG, Q12H
     Route: 048
     Dates: start: 20220807
  23. NEXIUM [Concomitant]
     Active Substance: ESOMEPRAZOLE MAGNESIUM
     Indication: Gastritis prophylaxis
     Dosage: 20 MG, EVERYDAY
     Route: 048
     Dates: start: 20220726
  24. SODIUM GUALENATE [Concomitant]
     Active Substance: SODIUM GUALENATE
     Indication: Stomatitis
     Dosage: APPROPRIATE AMOUNT, PRN
     Route: 002
     Dates: start: 20220822

REACTIONS (2)
  - Nausea [Recovering/Resolving]
  - C-reactive protein increased [Recovering/Resolving]

NARRATIVE: CASE EVENT DATE: 20220822
